FAERS Safety Report 9839338 (Version 5)
Quarter: 2014Q1

REPORT INFORMATION
  Report Type: Report from Study
  Country: DE (occurrence: DE)
  Receive Date: 20140123
  Receipt Date: 20140211
  Transmission Date: 20141002
  Serious: Yes (Death, Hospitalization)
  Sender: FDA-Public Use
  Company Number: PHHY2013DE140941

PATIENT
  Sex: Female
  Weight: 84.5 kg

DRUGS (7)
  1. AFINITOR [Suspect]
     Indication: BREAST CANCER METASTATIC
     Dosage: 10 MG, QD
     Route: 048
     Dates: start: 20130410, end: 20130425
  2. AFINITOR [Suspect]
     Dosage: 5 MG, QD
     Route: 048
     Dates: start: 20130513, end: 20130611
  3. AFINITOR [Suspect]
     Dosage: 10 MG, QD
     Route: 048
     Dates: start: 20130612, end: 20130623
  4. AFINITOR [Suspect]
     Dosage: 5 MG, QD
     Route: 048
     Dates: start: 20130624, end: 20130919
  5. EXEMESTANE [Concomitant]
     Indication: BREAST CANCER METASTATIC
     Dosage: 25 MG, QD
     Route: 048
     Dates: start: 20130401, end: 20131108
  6. ARCOXIA [Concomitant]
     Dosage: 90 MG, UNK
     Route: 048
  7. FENTANYL [Concomitant]
     Route: 062

REACTIONS (12)
  - Death [Fatal]
  - Pneumonitis [Recovering/Resolving]
  - Dyspnoea [Unknown]
  - Chest pain [Unknown]
  - Alveolitis allergic [Not Recovered/Not Resolved]
  - Hypoxia [Recovering/Resolving]
  - Cardiac failure [Unknown]
  - Oedema peripheral [Unknown]
  - Palpitations [Unknown]
  - Fatigue [Unknown]
  - Hypertension [Recovered/Resolved]
  - Lung disorder [Recovering/Resolving]
